FAERS Safety Report 9181721 (Version 1)
Quarter: 2013Q1

REPORT INFORMATION
  Report Type: Spontaneous
  Country: US (occurrence: None)
  Receive Date: 20130321
  Receipt Date: 20130321
  Transmission Date: 20140127
  Serious: Yes (Other)
  Sender: FDA-Public Use
  Company Number: None

PATIENT
  Age: 77 Year
  Sex: Female
  Weight: 47.63 kg

DRUGS (1)
  1. LISINOPRIL [Suspect]
     Dosage: 2.5 ONCE A DAY PO
     Route: 048

REACTIONS (1)
  - Hyponatraemia [None]
